FAERS Safety Report 6243094-3 (Version None)
Quarter: 2009Q2

REPORT INFORMATION
  Report Type: 
  Country: None (occurrence: None)
  Receive Date: 20090617
  Receipt Date: 20080516
  Transmission Date: 20091009
  Serious: No
  Sender: FDA-Public Use
  Company Number: 275739

PATIENT
  Age: 79 Year
  Sex: Female

DRUGS (2)
  1. NOVOLOG [Suspect]
     Indication: INSULIN-REQUIRING TYPE 2 DIABETES MELLITUS
  2. LEVEMIR [Suspect]
     Indication: INSULIN-REQUIRING TYPE 2 DIABETES MELLITUS

REACTIONS (1)
  - RASH [None]
